FAERS Safety Report 9196754 (Version 2)
Quarter: 2013Q4

REPORT INFORMATION
  Report Type: Spontaneous
  Country: US (occurrence: US)
  Receive Date: 20130328
  Receipt Date: 20131126
  Transmission Date: 20140711
  Serious: Yes (Hospitalization, Other)
  Sender: FDA-Public Use
  Company Number: US-BAYER-2013-038358

PATIENT
  Sex: Female

DRUGS (14)
  1. YAZ [Suspect]
  2. YASMIN [Suspect]
  3. OCELLA [Suspect]
  4. MIDODRINE [Concomitant]
     Dosage: 2.5 MG, UNK
  5. DEXILANT [Concomitant]
     Dosage: 60 MG, UNK
  6. TRAMADOL [Concomitant]
     Dosage: 50 MG, UNK
  7. NAPROXEN [Concomitant]
     Dosage: 500 MG, UNK
  8. KAPIDEX [Concomitant]
     Dosage: 60 MG, UNK
     Route: 048
  9. DEXLANSOPRAZOLE [Concomitant]
     Dosage: 60 MG,
     Route: 048
  10. LORTAB [Concomitant]
  11. MOTRIN [Concomitant]
  12. ZOFRAN [Concomitant]
  13. APRI [Concomitant]
  14. ORTHO-CEPT [Concomitant]

REACTIONS (6)
  - Gallbladder injury [None]
  - Biliary dyskinesia [None]
  - Cholecystitis chronic [None]
  - Injury [None]
  - Pain [None]
  - Pain [None]
